FAERS Safety Report 7705172-9 (Version None)
Quarter: 2011Q3

REPORT INFORMATION
  Report Type: 
  Country: None (occurrence: None)
  Receive Date: 20110824
  Receipt Date: 20110815
  Transmission Date: 20111222
  Serious: Yes (Other)
  Sender: FDA-Public Use
  Company Number: JP-BRISTOL-MYERS SQUIBB COMPANY-15994510

PATIENT
  Age: 59 Year
  Sex: Male

DRUGS (6)
  1. FLUOROURACIL [Suspect]
     Indication: COLON CANCER METASTATIC
  2. FLUOROURACIL [Suspect]
     Indication: METASTASES TO LIVER
  3. LEUCOVORIN CALCIUM [Suspect]
     Indication: METASTASES TO LIVER
  4. CETUXIMAB [Suspect]
     Indication: COLON CANCER METASTATIC
  5. LEUCOVORIN CALCIUM [Suspect]
     Indication: COLON CANCER METASTATIC
  6. CETUXIMAB [Suspect]
     Indication: METASTASES TO LIVER

REACTIONS (2)
  - SKIN TOXICITY [None]
  - NEUROPATHY PERIPHERAL [None]
